FAERS Safety Report 10522730 (Version 2)
Quarter: 2014Q4

REPORT INFORMATION
  Report Type: Spontaneous
  Country: US (occurrence: US)
  Receive Date: 20141016
  Receipt Date: 20141016
  Transmission Date: 20150528
  Serious: Yes (Other)
  Sender: FDA-Public Use
  Company Number: US-TAKEDA-2014TUS005119

PATIENT

DRUGS (3)
  1. HUMALOG [Concomitant]
     Active Substance: INSULIN LISPRO
     Dosage: 8 IU, QD
  2. GLUCOPHAGE [Concomitant]
     Active Substance: METFORMIN HYDROCHLORIDE
     Dosage: UNK
     Dates: start: 1996, end: 2001
  3. ACTOS [Suspect]
     Active Substance: PIOGLITAZONE HYDROCHLORIDE
     Indication: TYPE 2 DIABETES MELLITUS
     Dosage: UNK
     Route: 048
     Dates: start: 1999, end: 2002

REACTIONS (2)
  - Renal cancer [Unknown]
  - Bladder cancer [Unknown]

NARRATIVE: CASE EVENT DATE: 2001
